FAERS Safety Report 18197167 (Version 1)
Quarter: 2020Q3

REPORT INFORMATION
  Report Type: Spontaneous
  Country: ES (occurrence: ES)
  Receive Date: 20200826
  Receipt Date: 20200826
  Transmission Date: 20201103
  Serious: Yes (Other)
  Sender: FDA-Public Use
  Company Number: ES-PFIZER INC-2020327803

PATIENT
  Age: 70 Year
  Sex: Female

DRUGS (5)
  1. PHENYTOIN SODIUM. [Suspect]
     Active Substance: PHENYTOIN SODIUM
     Indication: EPILEPSY
     Dosage: 300 MG, DAILY (4.3MG/KG/D)
  2. ATORVASTATIN [Concomitant]
     Active Substance: ATORVASTATIN
     Dosage: 20 MG, DAILY
  3. DEXIBUPROFEN [Interacting]
     Active Substance: DEXIBUPROFEN
     Indication: ARTHRALGIA
     Dosage: 800 MG, DAILY
  4. OMEPRAZOLE. [Concomitant]
     Active Substance: OMEPRAZOLE
     Dosage: 20 MG, DAILY
  5. ACETYLSALICYLIC ACID [Concomitant]
     Active Substance: ASPIRIN
     Dosage: 100 MG, DAILY

REACTIONS (8)
  - Somnolence [Recovered/Resolved]
  - Xanthopsia [Recovered/Resolved]
  - Drug level above therapeutic [Recovered/Resolved]
  - Vertigo [Recovered/Resolved]
  - Neurotoxicity [Recovered/Resolved]
  - Vision blurred [Recovered/Resolved]
  - Drug interaction [Recovered/Resolved]
  - Nystagmus [Recovered/Resolved]
